FAERS Safety Report 24292890 (Version 1)
Quarter: 2024Q3

REPORT INFORMATION
  Report Type: Spontaneous
  Country: US (occurrence: None)
  Receive Date: 20240906
  Receipt Date: 20240906
  Transmission Date: 20241016
  Serious: No
  Sender: DOMPE FARMACEUTICI
  Company Number: US-FARMAPROD-202308-202310-3207

PATIENT
  Age: 80 Year
  Sex: Male

DRUGS (11)
  1. OXERVATE [Suspect]
     Active Substance: CENEGERMIN-BKBJ
     Indication: Neurotrophic keratopathy
     Route: 047
     Dates: start: 20231027
  2. OXERVATE [Suspect]
     Active Substance: CENEGERMIN-BKBJ
  3. LISINOPRIL [Concomitant]
     Active Substance: LISINOPRIL
  4. RANOLAZINE [Concomitant]
     Active Substance: RANOLAZINE
     Dosage: FOR 12 HOURS.
  5. MIEBO [Concomitant]
     Active Substance: PERFLUOROHEXYLOCTANE
  6. GABAPENTIN [Concomitant]
     Active Substance: GABAPENTIN
  7. ZETIA [Concomitant]
     Active Substance: EZETIMIBE
  8. PLAVIX [Concomitant]
     Active Substance: CLOPIDOGREL BISULFATE
  9. FINASTERIDE [Concomitant]
     Active Substance: FINASTERIDE
  10. LIPITOR [Concomitant]
     Active Substance: ATORVASTATIN CALCIUM
  11. MOXIFLOXACIN [Concomitant]
     Active Substance: MOXIFLOXACIN

REACTIONS (5)
  - Eye irritation [Not Recovered/Not Resolved]
  - Eye pain [Not Recovered/Not Resolved]
  - Periorbital pain [Not Recovered/Not Resolved]
  - Therapy interrupted [Unknown]
  - COVID-19 [Unknown]

NARRATIVE: CASE EVENT DATE: 20231027
